FAERS Safety Report 4548370-8 (Version None)
Quarter: 2004Q4

REPORT INFORMATION
  Report Type: 
  Country: None (occurrence: None)
  Receive Date: 20041220
  Receipt Date: 20040203
  Transmission Date: 20050328
  Serious: Yes (Hospitalization, Other)
  Sender: FDA-Public Use
  Company Number: US_0402100503

PATIENT
  Age: 78 Year
  Sex: Female
  Weight: 52 kg

DRUGS (1)
  1. HUMULIN N [Suspect]
     Dosage: 15U
     Dates: start: 19941001

REACTIONS (5)
  - BLOOD GLUCOSE DECREASED [None]
  - CATARACT OPERATION [None]
  - LOSS OF CONSCIOUSNESS [None]
  - MACULAR DEGENERATION [None]
  - VISUAL ACUITY REDUCED [None]
